FAERS Safety Report 4778949-X (Version None)
Quarter: 2005Q3

REPORT INFORMATION
  Report Type: 
  Country: None (occurrence: None)
  Receive Date: 20050922
  Receipt Date: 20050915
  Transmission Date: 20060218
  Serious: Yes (Death, Hospitalization)
  Sender: FDA-Public Use
  Company Number: 2005-131377-NL

PATIENT
  Age: 59 Year
  Sex: Male

DRUGS (7)
  1. VECURONIUM BROMIDE [Suspect]
     Indication: SEDATION
     Dosage: 60 MG
     Route: 041
     Dates: start: 20050702, end: 20050725
  2. MIDAZOLAM HYDROCHLORIDE [Concomitant]
  3. PROPOFOL [Concomitant]
  4. FENTANYL CITRATE [Concomitant]
  5. ROXATADINE ACETATE HYDROCHLORIDE [Concomitant]
  6. TEICOPLANIN [Concomitant]
  7. DOPAMINE HCL [Concomitant]

REACTIONS (7)
  - ASTHENIA [None]
  - GRIP STRENGTH DECREASED [None]
  - HYPOKINESIA [None]
  - HYPOPNOEA [None]
  - NEUROMUSCULAR BLOCK PROLONGED [None]
  - POST PROCEDURAL COMPLICATION [None]
  - SEPTIC SHOCK [None]
